FAERS Safety Report 8818833 (Version 2)
Quarter: 2012Q4

REPORT INFORMATION
  Report Type: 
  Country: MX (occurrence: MX)
  Receive Date: 20121001
  Receipt Date: 20121123
  Transmission Date: 20130627
  Serious: Yes (Other)
  Sender: FDA-Public Use
  Company Number: PHHY2012MX084743

PATIENT
  Age: 66 Year
  Sex: Female

DRUGS (3)
  1. CO-DIOVAN [Suspect]
     Indication: HYPERTENSION
     Dosage: 1 DF, daily
     Dates: start: 20070208, end: 20120925
  2. SELOKEN [Concomitant]
     Dosage: 1 UKN, daily
  3. DAVES [Concomitant]
     Dosage: 1 UKN, daily

REACTIONS (7)
  - Bronchopneumonia [Not Recovered/Not Resolved]
  - Generalised oedema [Not Recovered/Not Resolved]
  - Feeling abnormal [Not Recovered/Not Resolved]
  - Fluid retention [Not Recovered/Not Resolved]
  - Malaise [Unknown]
  - Bronchitis [Unknown]
  - Blood pressure increased [Not Recovered/Not Resolved]
